FAERS Safety Report 23888940 (Version 3)
Quarter: 2024Q4

REPORT INFORMATION
  Report Type: Spontaneous
  Country: US (occurrence: US)
  Receive Date: 20240523
  Receipt Date: 20241128
  Transmission Date: 20250114
  Serious: No
  Sender: PFIZER
  Company Number: US-PFIZER INC-202400172558

PATIENT
  Age: 16 Year
  Sex: Male

DRUGS (1)
  1. GENOTROPIN [Suspect]
     Active Substance: SOMATROPIN
     Indication: Short stature
     Dosage: 4.0, 6 TIMES A WEEK NOT SURE IF MG
     Dates: start: 202301

REACTIONS (4)
  - Device physical property issue [Unknown]
  - Device delivery system issue [Unknown]
  - Device difficult to use [Unknown]
  - Drug dose omission by device [Unknown]
